FAERS Safety Report 7194236-7 (Version None)
Quarter: 2010Q4

REPORT INFORMATION
  Report Type: 
  Country: None (occurrence: None)
  Receive Date: 20101223
  Receipt Date: 20101215
  Transmission Date: 20110411
  Serious: Yes (Other)
  Sender: FDA-Public Use
  Company Number: JP-ASTRAZENECA-2010SE59424

PATIENT
  Age: 46 Year
  Sex: Female

DRUGS (2)
  1. NOLVADEX [Suspect]
     Indication: BREAST CANCER
     Route: 048
  2. TRASTUZUMAB(GENETICAL RECOMBINATION) [Concomitant]
     Indication: BREAST CANCER
     Route: 065

REACTIONS (1)
  - LEUKAEMIA [None]
